FAERS Safety Report 12273678 (Version 2)
Quarter: 2016Q4

REPORT INFORMATION
  Report Type: Report from Study
  Country: None (occurrence: US)
  Receive Date: 20160415
  Receipt Date: 20161018
  Transmission Date: 20170207
  Serious: Yes (Hospitalization, Other)
  Sender: FDA-Public Use
  Company Number: US-ABBVIE-16K-163-1601716-00

PATIENT
  Sex: Female

DRUGS (1)
  1. HUMIRA [Suspect]
     Active Substance: ADALIMUMAB
     Indication: PSORIATIC ARTHROPATHY
     Route: 058
     Dates: start: 20140215, end: 20160316

REACTIONS (3)
  - Hernia [Not Recovered/Not Resolved]
  - Postoperative wound complication [Unknown]
  - Intestinal operation [Unknown]

NARRATIVE: CASE EVENT DATE: 2016
